FAERS Safety Report 8437486-1 (Version None)
Quarter: 2012Q2

REPORT INFORMATION
  Report Type: 
  Country: None (occurrence: None)
  Receive Date: 20120614
  Receipt Date: 20120603
  Transmission Date: 20120825
  Serious: Yes (Other)
  Sender: FDA-Public Use
  Company Number: US-BAYER-2012-056784

PATIENT

DRUGS (1)
  1. SODIUM BICARBONATE [Suspect]
     Dosage: BOTTLE COUNT: NOT REPORTED
     Route: 048

REACTIONS (2)
  - DRUG DEPENDENCE [None]
  - CHROMATURIA [None]
